FAERS Safety Report 20614132 (Version 3)
Quarter: 2022Q3

REPORT INFORMATION
  Report Type: Other
  Country: DE (occurrence: DE)
  Receive Date: 20220320
  Receipt Date: 20220809
  Transmission Date: 20221026
  Serious: Yes (Hospitalization, Other)
  Sender: FDA-Public Use
  Company Number: DE-MACLEODS PHARMACEUTICALS US LTD-MAC2022034914

PATIENT

DRUGS (45)
  1. AMLODIPINE [Suspect]
     Active Substance: AMLODIPINE BESYLATE
     Indication: Hypertension
     Dosage: 10 MILLIGRAM, QD (5 MG, BID (MORNING, EVENING))
     Route: 065
  2. VALSARTAN [Suspect]
     Active Substance: VALSARTAN
     Indication: Product used for unknown indication
     Dosage: 4 DOSAGE FORM, QD ((80 MG) QID), TABLET; START DATE OCT 2014
     Route: 065
  3. VALSARTAN [Suspect]
     Active Substance: VALSARTAN
     Dosage: 1 DOSAGE FORM, QD (0.5 DF, (160 MG) BID (MORNING, NOON)), TABLET
     Route: 065
  4. VALSARTAN [Suspect]
     Active Substance: VALSARTAN
     Dosage: 160 MILLIGRAM, QD (80 MG, BID (MORNING AND EVENING, TABLET))
     Route: 065
  5. VALSARTAN [Suspect]
     Active Substance: VALSARTAN
     Dosage: 160 MILLIGRAM, QD IN THE EVENING (TABLET)
     Route: 065
  6. VALSARTAN [Suspect]
     Active Substance: VALSARTAN
     Dosage: 2 DOSAGE FORM, QD (1 DF, (160 MG) BID MORNING, EVENING, TABLET))
     Route: 065
  7. METOPROLOL [Suspect]
     Active Substance: METOPROLOL
     Indication: Essential tremor
     Dosage: UNK; (START DATE: MAR 2013 AND STOP DATE: MAR 2013)
     Route: 065
  8. PROPRANOLOL [Suspect]
     Active Substance: PROPRANOLOL HYDROCHLORIDE
     Indication: Essential tremor
     Dosage: UNK (START DATE: MAR 2012 AND STOP DATE MAR 2012)
     Route: 065
  9. VALSARTAN [Suspect]
     Active Substance: VALSARTAN
     Indication: Hypertension
     Dosage: 160 MILLIGRAM, QD (DIVIDED TABLET OF 160 MG, QD, FILM-COATED TABLET)
     Route: 065
  10. VALSARTAN [Suspect]
     Active Substance: VALSARTAN
     Dosage: 1 DOSAGE FORM, QD (0.5 DF, (80 MG) BID (MORNING, NOON)FILM-COATED TABLET)
     Route: 065
     Dates: start: 20140710, end: 20181217
  11. VALSARTAN [Suspect]
     Active Substance: VALSARTAN
     Dosage: 320 MILLIGRAM, FILM-COATED TABLET (START DATE: 2013 AND STOP DATE: 2013)
     Route: 065
  12. VALSARTAN [Suspect]
     Active Substance: VALSARTAN
     Dosage: 1 DOSAGE FORM, QD, 1 DF, (160 MG) QD IN THE EVENING, FILM-COATED TABLET
     Route: 065
     Dates: start: 20140710, end: 20181217
  13. VALSARTAN [Suspect]
     Active Substance: VALSARTAN
     Dosage: 1 DOSAGE FORM, QD, 0.5 DF, (80 MG) BID (MORNING, NOON), FILM-COATED TABLET
     Route: 065
     Dates: start: 20120313, end: 20180709
  14. VALSARTAN [Suspect]
     Active Substance: VALSARTAN
     Dosage: 1 DOSAGE FORM, QD, 1 DF, (160 MG) QD IN THE EVENING, FILM-COATED TABLET
     Route: 065
     Dates: start: 20120313, end: 20180709
  15. HYDROCHLOROTHIAZIDE [Suspect]
     Active Substance: HYDROCHLOROTHIAZIDE
     Indication: Product used for unknown indication
     Dosage: UNK
     Route: 065
  16. VERAPAMIL HYDROCHLORIDE [Suspect]
     Active Substance: VERAPAMIL HYDROCHLORIDE
     Indication: Product used for unknown indication
     Dosage: UNK
     Route: 065
  17. HYDROCHLOROTHIAZIDE\LISINOPRIL [Suspect]
     Active Substance: HYDROCHLOROTHIAZIDE\LISINOPRIL
     Indication: Hypertension
     Dosage: UNK UNK, QD; START DATE: 1998
     Route: 065
  18. HYDROCHLOROTHIAZIDE\LISINOPRIL [Suspect]
     Active Substance: HYDROCHLOROTHIAZIDE\LISINOPRIL
     Dosage: 1 DOSAGE FORM, QD (0.5 DOSAGE FORM, BID)
     Route: 065
  19. HYDROCHLOROTHIAZIDE\VALSARTAN [Suspect]
     Active Substance: HYDROCHLOROTHIAZIDE\VALSARTAN
     Indication: Hypertension
     Dosage: UNK
     Route: 065
  20. HYDROCHLOROTHIAZIDE\VALSARTAN [Suspect]
     Active Substance: HYDROCHLOROTHIAZIDE\VALSARTAN
     Indication: Product used for unknown indication
     Dosage: UNK
     Route: 065
  21. CAPTOPRIL [Suspect]
     Active Substance: CAPTOPRIL
     Indication: Hypertension
     Dosage: 100 MILLIGRAM, QD (50 MG, BID) START DEC2011
     Route: 065
  22. MOXONIDINE [Suspect]
     Active Substance: MOXONIDINE
     Indication: Hypertension
     Dosage: UNK
     Route: 065
  23. CANDESARTAN [Concomitant]
     Active Substance: CANDESARTAN
     Indication: Product used for unknown indication
     Dosage: 1 DOSAGE FORM, QD (1 DOSAGE FORM, QD OF 16 MG EVENING)
     Route: 065
  24. CANDESARTAN [Concomitant]
     Active Substance: CANDESARTAN
     Dosage: 1 DOSAGE FORM (0.5 DOSAGE FORM, BID OF 16 MG MORNING , NOON)
     Route: 065
  25. TORSEMIDE [Concomitant]
     Active Substance: TORSEMIDE
     Indication: Hypertension
     Dosage: 1 DOSAGE FORM, 1 DOSAGE FORM OF 10 MG, TABLET
     Route: 065
  26. TORSEMIDE [Concomitant]
     Active Substance: TORSEMIDE
     Dosage: 1 DOSAGE FORM, QD, 1 DOSAGE FORM, QD OF 5 MG MORNING, TABLET; START DATE 2014
     Route: 065
  27. TORSEMIDE [Concomitant]
     Active Substance: TORSEMIDE
     Dosage: 2 DOSAGE FORM, QD (1 DOSAGE FORM, BID OF 5 MG MORNING AND EVENING), TABLET
     Route: 065
  28. TORSEMIDE [Concomitant]
     Active Substance: TORSEMIDE
     Dosage: 1 DOSAGE FORM, QD (0.5 DOSAGE FORM, BID OF 5MG MORNING, NOON) :START DATE 1998 AND STOP DATE 2014
     Route: 065
  29. TORSEMIDE [Concomitant]
     Active Substance: TORSEMIDE
     Dosage: 5 MILLIGRAM, EVENING, TABLET ; START DATE: SEP 2014
     Route: 065
  30. TORSEMIDE [Concomitant]
     Active Substance: TORSEMIDE
     Dosage: 1 DOSAGE FORM, QD (TABLET)
     Route: 065
  31. BISOPROLOL [Concomitant]
     Active Substance: BISOPROLOL
     Indication: Hypertension
     Dosage: 1 DOSAGE FORM, QD OF 5 MG MORNING
     Route: 065
  32. BISOPROLOL [Concomitant]
     Active Substance: BISOPROLOL
     Dosage: 1 DOSAGE FORM, QD (0.5 DOSAGE FORM, BID OF 5 MG MORNING, NOON)
     Route: 065
  33. NEBIVOLOL [Concomitant]
     Active Substance: NEBIVOLOL
     Indication: Product used for unknown indication
     Dosage: UNK; START DATE: DEC 2011
     Route: 065
  34. UNSPECIFIED INGREDIENT [Concomitant]
     Active Substance: UNSPECIFIED INGREDIENT
     Indication: Product used for unknown indication
     Dosage: UNK
     Route: 065
  35. KERLONE [Concomitant]
     Active Substance: BETAXOLOL HYDROCHLORIDE
     Indication: Product used for unknown indication
     Dosage: 1 DOSAGE FORM, QD OF 20 MG MORNING
     Route: 065
  36. KERLONE [Concomitant]
     Active Substance: BETAXOLOL HYDROCHLORIDE
     Dosage: 1 DOSAGE FORM, QD OF 10 MG MORNING: START DATE DEC 2011
     Route: 065
  37. KERLONE [Concomitant]
     Active Substance: BETAXOLOL HYDROCHLORIDE
     Dosage: 0.5 DOSAGE FORM IN MORNING
     Route: 065
  38. TORSEMIDE [Concomitant]
     Active Substance: TORSEMIDE
     Indication: Hypertension
     Dosage: 1 DOSAGE FORM, QD OF 5 MG EVENING) (START DATE:2018 AND STOP DATE: 2018)
     Route: 065
  39. FELODIPINE [Concomitant]
     Active Substance: FELODIPINE
     Indication: Hypertension
     Dosage: 2 DOSAGE FORM, QD (1 DOSAGE FORM, BID OF 5 MG MORNING, EVENING)
     Route: 065
  40. PANTOZOL [Concomitant]
     Active Substance: PANTOPRAZOLE SODIUM
     Indication: Abdominal discomfort
     Dosage: 20 MILLIGRAM, QD; START DATE 2014
     Route: 065
  41. PANTOZOL [Concomitant]
     Active Substance: PANTOPRAZOLE SODIUM
     Dosage: 20 MILLIGRAM, QD; (WHEN TAKING IBUPROFEN)
     Route: 065
  42. IBUPROFEN [Concomitant]
     Active Substance: IBUPROFEN
     Indication: Intervertebral disc protrusion
     Dosage: 600 MILLIGRAM
     Route: 065
  43. IBUPROFEN [Concomitant]
     Active Substance: IBUPROFEN
     Dosage: 1200 MILLIGRAM, QD; 600 MG, BID IN THE MORNING AND IN THE EVENING) AS REQUIRED
     Route: 065
  44. CLOPIDOGREL [Concomitant]
     Active Substance: CLOPIDOGREL BISULFATE
     Indication: Coronary artery disease
     Dosage: 75 MILLIGRAM, QD; 75 MG, QD (MORNING); START DATE OCT 2014
     Route: 065
  45. CLOPIDOGREL [Concomitant]
     Active Substance: CLOPIDOGREL BISULFATE
     Dosage: 75 MILLIGRAM, QD; 75 MG, QD (MORNING); START DATE 2015
     Route: 065

REACTIONS (99)
  - Restless legs syndrome [Unknown]
  - Dyspnoea exertional [Unknown]
  - Snoring [Unknown]
  - Coronary artery disease [Unknown]
  - Sinus headache [Unknown]
  - Back pain [Recovered/Resolved]
  - Peroneal nerve palsy [Unknown]
  - Orthostatic intolerance [Recovered/Resolved]
  - Extensor plantar response [Unknown]
  - Coronary artery stenosis [Unknown]
  - Facial pain [Unknown]
  - Headache [Unknown]
  - Nausea [Recovered/Resolved]
  - Vertigo [Recovered/Resolved]
  - Fatigue [Recovered/Resolved]
  - Pain [Recovered/Resolved]
  - Pain [Recovering/Resolving]
  - Obstructive sleep apnoea syndrome [Unknown]
  - Dry mouth [Unknown]
  - Intervertebral disc disorder [Unknown]
  - Asthenia [Unknown]
  - Intervertebral disc protrusion [Unknown]
  - Arteriosclerosis coronary artery [Unknown]
  - Cardiopulmonary exercise test abnormal [Unknown]
  - Pulmonary valve incompetence [Unknown]
  - Asthenia [Not Recovered/Not Resolved]
  - Vestibular neuronitis [Recovered/Resolved]
  - Angina pectoris [Unknown]
  - Neurogenic shock [Unknown]
  - Aortic valve incompetence [Unknown]
  - Osteochondrosis [Unknown]
  - Peripheral swelling [Unknown]
  - Skin discolouration [Unknown]
  - Myosclerosis [Unknown]
  - Tricuspid valve incompetence [Unknown]
  - Melanocytic naevus [Unknown]
  - Nerve injury [Unknown]
  - Cervicobrachial syndrome [Unknown]
  - Joint dislocation [Unknown]
  - Memory impairment [Recovering/Resolving]
  - Benign prostatic hyperplasia [Unknown]
  - Knee deformity [Unknown]
  - Back pain [Recovering/Resolving]
  - Quality of life decreased [Unknown]
  - Drug intolerance [Unknown]
  - Aortic dilatation [Unknown]
  - Arthralgia [Recovering/Resolving]
  - Periarthritis [Unknown]
  - Gait disturbance [Unknown]
  - Hypertension [Unknown]
  - Arthritis [Unknown]
  - Oedema peripheral [Unknown]
  - Neurofibroma [Unknown]
  - Merycism [Unknown]
  - Dizziness [Unknown]
  - Abdominal pain [Unknown]
  - Nocturia [Unknown]
  - Sacroiliac joint dysfunction [Unknown]
  - Joint hyperextension [Unknown]
  - Solar lentigo [Unknown]
  - Fatigue [Unknown]
  - Meniscus injury [Unknown]
  - Dysphagia [Unknown]
  - Oesophagitis [Unknown]
  - Peripheral venous disease [Unknown]
  - Monoparesis [Unknown]
  - Neck pain [Unknown]
  - Pelvic misalignment [Unknown]
  - Wound [Unknown]
  - Inflammation [Unknown]
  - Neuralgia [Unknown]
  - Mental disorder [Not Recovered/Not Resolved]
  - Migraine with aura [Recovered/Resolved]
  - Stasis dermatitis [Unknown]
  - Musculoskeletal stiffness [Unknown]
  - Disturbance in attention [Unknown]
  - Hypercholesterolaemia [Unknown]
  - Spinal osteoarthritis [Unknown]
  - Diverticulum [Unknown]
  - Abdominal discomfort [Unknown]
  - Helicobacter test positive [Unknown]
  - Neoplasm skin [Unknown]
  - Chondropathy [Unknown]
  - Actinic keratosis [Unknown]
  - Hernia [Unknown]
  - Skin erosion [Unknown]
  - Bursitis [Unknown]
  - Factor VII deficiency [Unknown]
  - Cognitive disorder [Recovered/Resolved]
  - Meniscopathy [Unknown]
  - Rotator cuff syndrome [Unknown]
  - Patellofemoral pain syndrome [Unknown]
  - Peroneal nerve injury [Unknown]
  - Actinic keratosis [Recovered/Resolved]
  - Osteoarthritis [Unknown]
  - Haematoma [Unknown]
  - Chest pain [Unknown]
  - Drug hypersensitivity [Unknown]
  - Product use in unapproved indication [Unknown]

NARRATIVE: CASE EVENT DATE: 20111109
